FAERS Safety Report 8167941-3 (Version None)
Quarter: 2012Q1

REPORT INFORMATION
  Report Type: 
  Country: None (occurrence: None)
  Receive Date: 20120227
  Receipt Date: 20120220
  Transmission Date: 20120608
  Serious: Yes (Other)
  Sender: FDA-Public Use
  Company Number: US-VIIV HEALTHCARE LIMITED-A0965016A

PATIENT
  Age: 30 Year
  Sex: Female

DRUGS (6)
  1. VITAMIN AND MINERAL PRENATAL SUPPLEMENT W/ FOLIC ACID CAP [Concomitant]
  2. COMBIVIR [Suspect]
     Indication: ANTIRETROVIRAL THERAPY
     Dosage: 2TAB PER DAY
     Route: 048
     Dates: start: 20110705
  3. TERCONAZOLE [Concomitant]
  4. KALETRA [Suspect]
     Indication: ANTIRETROVIRAL THERAPY
     Dosage: 4TAB PER DAY
     Route: 048
     Dates: start: 20110705
  5. OXYCODONE HCL [Concomitant]
     Dates: start: 20110806
  6. FLU SHOT [Concomitant]

REACTIONS (6)
  - STILLBIRTH [None]
  - MATERNAL EXPOSURE DURING PREGNANCY [None]
  - SINGLE UMBILICAL ARTERY [None]
  - UMBILICAL CORD ABNORMALITY [None]
  - BACK PAIN [None]
  - JOINT DISLOCATION [None]
